FAERS Safety Report 5478182-2 (Version None)
Quarter: 2007Q4

REPORT INFORMATION
  Report Type: 
  Country: None (occurrence: None)
  Receive Date: 20071005
  Receipt Date: 20070314
  Transmission Date: 20080405
  Serious: No
  Sender: FDA-Public Use
  Company Number: US-BRISTOL-MYERS SQUIBB COMPANY-13716907

PATIENT
  Sex: Male

DRUGS (6)
  1. AVAPRO [Suspect]
     Indication: CARDIOVASCULAR DISORDER
     Dosage: DRUG INTERRUPTED THEN RESTARTED
  2. TOPROL-XL [Concomitant]
  3. CADUET [Concomitant]
     Indication: BLOOD PRESSURE
  4. ACTOSE [Concomitant]
  5. METFORMIN HCL [Concomitant]
  6. JANUVIA [Concomitant]

REACTIONS (1)
  - BLOOD CREATININE INCREASED [None]
